FAERS Safety Report 16415468 (Version 1)
Quarter: 2019Q3

REPORT INFORMATION
  Report Type: Spontaneous
  Country: US (occurrence: US)
  Receive Date: 20190610
  Receipt Date: 20190610
  Transmission Date: 20191004
  Serious: Yes (Other)
  Sender: FDA-Public Use
  Company Number: None

PATIENT
  Age: 5 Year
  Sex: Male

DRUGS (1)
  1. SINGULAIR [Suspect]
     Active Substance: MONTELUKAST SODIUM
     Indication: OTITIS MEDIA CHRONIC
     Route: 048
     Dates: start: 20140613, end: 20150113

REACTIONS (5)
  - Product substitution issue [None]
  - Aggression [None]
  - Anger [None]
  - Attention deficit/hyperactivity disorder [None]
  - Anxiety [None]

NARRATIVE: CASE EVENT DATE: 20150115
